FAERS Safety Report 20901721 (Version 1)
Quarter: 2022Q2

REPORT INFORMATION
  Report Type: Spontaneous
  Country: PL (occurrence: PL)
  Receive Date: 20220601
  Receipt Date: 20220601
  Transmission Date: 20220721
  Serious: Yes (Hospitalization)
  Sender: FDA-Public Use
  Company Number: PL-NOVARTISPH-NVSC2022PL124873

PATIENT
  Age: 17 Year
  Sex: Female

DRUGS (7)
  1. VIGAMOX [Suspect]
     Active Substance: MOXIFLOXACIN HYDROCHLORIDE
     Indication: Ulcerative keratitis
     Dosage: UNK UNK, QID
     Route: 065
  2. PROPAMIDINE ISETHIONATE [Suspect]
     Active Substance: PROPAMIDINE ISETHIONATE
     Indication: Ulcerative keratitis
     Dosage: UNK UNK, QID
     Route: 065
  3. GANCICLOVIR [Suspect]
     Active Substance: GANCICLOVIR
     Indication: Ulcerative keratitis
     Dosage: UNK UNK, QID
     Route: 065
  4. FLUCONAZOLE [Suspect]
     Active Substance: FLUCONAZOLE
     Indication: Ulcerative keratitis
     Dosage: UNK UNK, QID
     Route: 065
  5. TROPICAMIDE [Suspect]
     Active Substance: TROPICAMIDE
     Indication: Ulcerative keratitis
     Dosage: UNK UNK, TID
     Route: 065
  6. LOTEMAX [Suspect]
     Active Substance: LOTEPREDNOL ETABONATE
     Indication: Ulcerative keratitis
     Dosage: UNK UNK, BID
     Route: 065
  7. ACYCLOVIR [Suspect]
     Active Substance: ACYCLOVIR
     Indication: Ulcerative keratitis
     Dosage: UNK
     Route: 065

REACTIONS (4)
  - Keratitis [Unknown]
  - Neurotrophic keratopathy [Unknown]
  - Iridocyclitis [Unknown]
  - Product use in unapproved indication [Unknown]
